FAERS Safety Report 10102144 (Version 1)
Quarter: 2014Q2

REPORT INFORMATION
  Report Type: Spontaneous
  Country: ES (occurrence: None)
  Receive Date: 20140422
  Receipt Date: 20140422
  Transmission Date: 20141212
  Serious: Yes (Other)
  Sender: FDA-Public Use
  Company Number: AUR-APL-2014-04509

PATIENT
  Age: 30 Year
  Sex: Female

DRUGS (3)
  1. GABAPENTIN [Suspect]
     Indication: TRIGEMINAL NEURALGIA
     Dates: start: 201310, end: 20140404
  2. TRYPTIZOL (AMITRIPTYLINE HYDROCHLORIDE) [Concomitant]
  3. LORAZEPAM [Concomitant]

REACTIONS (2)
  - Seborrhoeic dermatitis [None]
  - Dental necrosis [None]
